FAERS Safety Report 7421065 (Version 8)
Quarter: 2013Q2

REPORT INFORMATION
  Report Type: Report from Study
  Country: CA (occurrence: CA)
  Receive Date: 20100616
  Receipt Date: 20130515
  Transmission Date: 20140414
  Serious: Yes (Disabling)
  Sender: FDA-Public Use
  Company Number: CA-ROCHE-708224

PATIENT
  Age: 59 Year
  Sex: Female
  Weight: 60 kg

DRUGS (5)
  1. BEVACIZUMAB [Suspect]
     Indication: BREAST CANCER
     Dosage: TOTAL DOSE: 900 MG, FORM: VIALS,DATE OF LAST DOSE PRIOR SAE: 10 MAY 2010, PERMANENTLY DISCONTINUED.
     Route: 042
     Dates: start: 20100419, end: 20100510
  2. TRASTUZUMAB [Suspect]
     Indication: BREAST CANCER
     Dosage: LOADING DOSE.
     Route: 042
  3. TRASTUZUMAB [Suspect]
     Dosage: TOTAL DOSE: 360 MG, FORM: VIALS, DATE OF LAST DOSE PRIOR TO SAE: 10 MAY 2010, MAINTENANCE DOSE
     Route: 042
  4. CARBOPLATIN [Suspect]
     Indication: BREAST CANCER
     Dosage: DOSE LEVEL:6 AUC,TOTAL DOSE:530 MG,VIALS, LAST DOSE PRIOR SAE: 10 MAY 2010, PERMANENTLY DISCONTINUED
     Route: 042
     Dates: start: 20100419, end: 20100510
  5. DOCETAXEL [Suspect]
     Indication: BREAST CANCER
     Dosage: TOTAL DOSE: 120 MG, FORM: VIALS, DATE OF LAST DOSE PRIOR SAE: 10 MAY 2010, PERMANENTLY DISCONTINUED.
     Route: 042
     Dates: start: 20100419, end: 20100510

REACTIONS (2)
  - Peripheral sensory neuropathy [Recovered/Resolved with Sequelae]
  - Skin exfoliation [Recovered/Resolved]
